FAERS Safety Report 5753215-4 (Version None)
Quarter: 2008Q2

REPORT INFORMATION
  Report Type: 
  Country: None (occurrence: None)
  Receive Date: 20080530
  Receipt Date: 20080526
  Transmission Date: 20081010
  Serious: Yes (Hospitalization)
  Sender: FDA-Public Use
  Company Number: IL-BAYER-200816687GPV

PATIENT
  Age: 33 Year
  Sex: Female

DRUGS (1)
  1. NEXAVAR [Suspect]
     Indication: METASTASES TO LUNG
     Dosage: TOTAL DAILY DOSE: 800 MG
     Route: 048

REACTIONS (2)
  - RASH GENERALISED [None]
  - STOMATITIS [None]
